FAERS Safety Report 14418560 (Version 2)
Quarter: 2018Q1

REPORT INFORMATION
  Report Type: Spontaneous
  Country: ES (occurrence: ES)
  Receive Date: 20180122
  Receipt Date: 20180327
  Transmission Date: 20180509
  Serious: Yes (Other)
  Sender: FDA-Public Use
  Company Number: ES-JNJFOC-20180123108

PATIENT
  Age: 40 Year
  Sex: Female
  Weight: 79.9 kg

DRUGS (2)
  1. STELARA [Suspect]
     Active Substance: USTEKINUMAB
     Indication: PSORIATIC ARTHROPATHY
     Route: 058
     Dates: start: 20160913
  2. STELARA [Suspect]
     Active Substance: USTEKINUMAB
     Indication: PSORIATIC ARTHROPATHY
     Route: 058
     Dates: start: 201703

REACTIONS (3)
  - Off label use [Unknown]
  - Lung adenocarcinoma stage IV [Unknown]
  - Product use issue [Unknown]

NARRATIVE: CASE EVENT DATE: 201703
